FAERS Safety Report 20132729 (Version 3)
Quarter: 2022Q1

REPORT INFORMATION
  Report Type: Spontaneous
  Country: JP (occurrence: JP)
  Receive Date: 20211130
  Receipt Date: 20220112
  Transmission Date: 20220423
  Serious: Yes (Other)
  Sender: FDA-Public Use
  Company Number: JP-BRISTOL-MYERS SQUIBB COMPANY-BMS-2021-101603

PATIENT
  Age: 38 Year
  Sex: Male

DRUGS (8)
  1. YERVOY [Suspect]
     Active Substance: IPILIMUMAB
     Indication: Colorectal cancer recurrent
     Dosage: 1 MILLIGRAM/KILOGRAM
     Route: 041
     Dates: start: 20210608, end: 20210608
  2. YERVOY [Suspect]
     Active Substance: IPILIMUMAB
     Indication: Colon cancer
     Dosage: 1 MILLIGRAM/KILOGRAM
     Route: 041
     Dates: start: 20210630, end: 20210630
  3. YERVOY [Suspect]
     Active Substance: IPILIMUMAB
     Dosage: 1 MILLIGRAM/KILOGRAM
     Route: 041
     Dates: start: 20210730, end: 20210730
  4. YERVOY [Suspect]
     Active Substance: IPILIMUMAB
     Dosage: 1 MILLIGRAM/KILOGRAM
     Route: 041
     Dates: start: 20210820, end: 20210820
  5. OPDIVO [Suspect]
     Active Substance: NIVOLUMAB
     Indication: Colorectal cancer recurrent
     Dosage: 240 MILLIGRAM
     Route: 041
     Dates: start: 20210608, end: 20210608
  6. OPDIVO [Suspect]
     Active Substance: NIVOLUMAB
     Indication: Colon cancer
     Dosage: 240 MILLIGRAM
     Route: 041
     Dates: start: 20210630, end: 20210630
  7. OPDIVO [Suspect]
     Active Substance: NIVOLUMAB
     Dosage: 240 MILLIGRAM
     Route: 041
     Dates: start: 20210730, end: 20210730
  8. OPDIVO [Suspect]
     Active Substance: NIVOLUMAB
     Dosage: 240 MILLIGRAM
     Route: 041
     Dates: start: 20210820, end: 20210820

REACTIONS (1)
  - Hepatic function abnormal [Recovered/Resolved]

NARRATIVE: CASE EVENT DATE: 20210910
